FAERS Safety Report 9162008 (Version 1)
Quarter: 2013Q1

REPORT INFORMATION
  Report Type: Report from Study
  Country: CA (occurrence: CA)
  Receive Date: 20130314
  Receipt Date: 20130314
  Transmission Date: 20140127
  Serious: Yes (Other)
  Sender: FDA-Public Use
  Company Number: CA-JNJFOC-20130110607

PATIENT
  Age: 68 Year
  Sex: Female
  Weight: 126 kg

DRUGS (14)
  1. REMICADE [Suspect]
     Indication: CROHN^S DISEASE
     Route: 042
     Dates: start: 20130228
  2. REMICADE [Suspect]
     Indication: CROHN^S DISEASE
     Route: 042
     Dates: start: 201203
  3. ATACAND [Concomitant]
     Route: 065
  4. METOPROLOL [Concomitant]
     Route: 065
  5. CELEBREX [Concomitant]
     Route: 065
  6. PRAVACHOL [Concomitant]
     Route: 065
  7. HYDROCHLOROTHIAZIDE [Concomitant]
     Route: 065
  8. FUROSEMIDE [Concomitant]
     Route: 065
  9. IMURAN [Concomitant]
     Route: 065
  10. VITAMIN D [Concomitant]
     Route: 065
  11. TOCOPHEROL [Concomitant]
     Route: 065
  12. BENADRYL [Concomitant]
     Indication: PREMEDICATION
     Route: 048
  13. TYLENOL [Concomitant]
     Indication: PREMEDICATION
     Route: 048
  14. HYDROCORTISONE [Concomitant]
     Indication: PREMEDICATION
     Route: 042

REACTIONS (3)
  - Pruritus [Recovered/Resolved]
  - Shoulder arthroplasty [Recovered/Resolved]
  - Infusion related reaction [Recovered/Resolved]
